FAERS Safety Report 12336449 (Version 1)
Quarter: 2016Q2

REPORT INFORMATION
  Report Type: Spontaneous
  Country: NO (occurrence: NO)
  Receive Date: 20160505
  Receipt Date: 20160505
  Transmission Date: 20160815
  Serious: Yes (Death)
  Sender: FDA-Public Use
  Company Number: NO-ACCORD-040312

PATIENT
  Age: 51 Year
  Sex: Female

DRUGS (9)
  1. CODEINE [Suspect]
     Active Substance: CODEINE
  2. OXAZEPAM. [Suspect]
     Active Substance: OXAZEPAM
  3. VENLAFAXINE/VENLAFAXINE HYDROCHLORIDE [Suspect]
     Active Substance: VENLAFAXINE HYDROCHLORIDE
  4. PARACETAMOL [Suspect]
     Active Substance: ACETAMINOPHEN
  5. PREGABALIN. [Suspect]
     Active Substance: PREGABALIN
  6. ZOPICLONE [Suspect]
     Active Substance: ZOPICLONE
  7. MIRTAZAPINE. [Suspect]
     Active Substance: MIRTAZAPINE
  8. QUETIAPINE. [Suspect]
     Active Substance: QUETIAPINE
  9. DIAZEPAM. [Suspect]
     Active Substance: DIAZEPAM

REACTIONS (1)
  - Toxicity to various agents [Fatal]
